FAERS Safety Report 13498866 (Version 1)
Quarter: 2017Q2

REPORT INFORMATION
  Report Type: Spontaneous
  Country: US (occurrence: US)
  Receive Date: 20170429
  Receipt Date: 20170429
  Transmission Date: 20170830
  Serious: No
  Sender: FDA-Public Use
  Company Number: None

PATIENT
  Age: 59 Year
  Sex: Female
  Weight: 66.6 kg

DRUGS (5)
  1. GADOLINIUM CONTRAST DYE [Suspect]
     Active Substance: GADOLINIUM
  2. TOPROL XL [Concomitant]
     Active Substance: METOPROLOL SUCCINATE
  3. MULTIVITAMIN [Concomitant]
     Active Substance: VITAMINS
  4. BABY ASPIRIN [Concomitant]
     Active Substance: ASPIRIN
  5. ALPHA LIPOIC ACID [Concomitant]
     Active Substance: .ALPHA.-LIPOIC ACID

REACTIONS (16)
  - Memory impairment [None]
  - Nausea [None]
  - Mental impairment [None]
  - Contusion [None]
  - Disturbance in attention [None]
  - Heart rate increased [None]
  - Arthralgia [None]
  - Pain in extremity [None]
  - Burning sensation [None]
  - Myalgia [None]
  - Pruritus generalised [None]
  - Skin hypertrophy [None]
  - Back pain [None]
  - Contrast media reaction [None]
  - Flank pain [None]
  - Eye pain [None]

NARRATIVE: CASE EVENT DATE: 20140510
